FAERS Safety Report 15429142 (Version 4)
Quarter: 2018Q4

REPORT INFORMATION
  Report Type: Spontaneous
  Country: US (occurrence: US)
  Receive Date: 20180926
  Receipt Date: 20181204
  Transmission Date: 20190204
  Serious: No
  Sender: FDA-Public Use
  Company Number: US-PFIZER INC-2018385806

PATIENT
  Age: 67 Year
  Sex: Female
  Weight: 82 kg

DRUGS (2)
  1. GABAPENTIN. [Suspect]
     Active Substance: GABAPENTIN
     Indication: POST HERPETIC NEURALGIA
     Dosage: 100 MG, 3X/DAY (MORNING, AFTERNOON AND EVENING)
     Route: 048
     Dates: start: 20171226, end: 201802
  2. GABAPENTIN. [Suspect]
     Active Substance: GABAPENTIN
     Dosage: 200 MG, 2X/DAY (2 CAPSULE)
     Route: 048

REACTIONS (7)
  - Dizziness [Recovered/Resolved]
  - Irritability [Recovered/Resolved]
  - Tremor [Recovered/Resolved]
  - Pain [Unknown]
  - Feeling abnormal [Recovered/Resolved]
  - Crying [Unknown]
  - Pruritus [Unknown]

NARRATIVE: CASE EVENT DATE: 20171228
